FAERS Safety Report 12073054 (Version 1)
Quarter: 2016Q1

REPORT INFORMATION
  Report Type: Spontaneous
  Country: FR (occurrence: FR)
  Receive Date: 20160212
  Receipt Date: 20160212
  Transmission Date: 20160526
  Serious: Yes (Hospitalization, Other)
  Sender: FDA-Public Use
  Company Number: FR-PFIZER INC-2016076842

PATIENT
  Age: 15 Year
  Sex: Female

DRUGS (7)
  1. XANAX [Suspect]
     Active Substance: ALPRAZOLAM
     Dosage: 0.25 MG, 3X/DAY, AS NEEDED
     Route: 048
     Dates: start: 20150916, end: 20150923
  2. IMOVANE [Suspect]
     Active Substance: ZOPICLONE
     Indication: INSOMNIA
     Dosage: 7.5 MG, 1X/DAY
     Route: 048
     Dates: start: 20150907, end: 20150913
  3. IMOVANE [Suspect]
     Active Substance: ZOPICLONE
     Dosage: 7.5 MG, 1X/DAY
     Route: 048
     Dates: start: 20150916, end: 20150930
  4. TERCIAN /00759301/ [Suspect]
     Active Substance: CYAMEMAZINE
     Indication: DEPRESSION
     Dosage: 25 MG, 1X/DAY
     Route: 048
     Dates: start: 20150904, end: 20150905
  5. INNOVAIR [Concomitant]
     Active Substance: BECLOMETHASONE DIPROPIONATE\FORMOTEROL
     Indication: ASTHMA
     Dosage: 1 DF, 2X/DAY
     Route: 055
     Dates: start: 201509
  6. FLUOXETINE [Concomitant]
     Active Substance: FLUOXETINE HYDROCHLORIDE
     Indication: DEPRESSION
     Dosage: UNK
     Route: 048
     Dates: start: 20150904
  7. XANAX [Suspect]
     Active Substance: ALPRAZOLAM
     Indication: ANXIETY
     Dosage: 0.25 MG, 3X/DAY, AS NEEDED
     Route: 048
     Dates: start: 20150903, end: 20150913

REACTIONS (5)
  - Bradycardia [Unknown]
  - Pulse pressure decreased [Unknown]
  - Hypotension [Unknown]
  - Hepatocellular injury [Recovered/Resolved]
  - Hypothermia [Unknown]

NARRATIVE: CASE EVENT DATE: 20150909
